FAERS Safety Report 5411565-5 (Version None)
Quarter: 2007Q3

REPORT INFORMATION
  Report Type: 
  Country: None (occurrence: None)
  Receive Date: 20070810
  Receipt Date: 20070802
  Transmission Date: 20080115
  Serious: Yes (Life-Threatening, Hospitalization)
  Sender: FDA-Public Use
  Company Number: FR-AMGEN-UK223701

PATIENT
  Age: 38 Year
  Sex: Female
  Weight: 53 kg

DRUGS (5)
  1. KEPIVANCE [Suspect]
     Indication: DRUG USE FOR UNKNOWN INDICATION
     Route: 042
     Dates: start: 20070103
  2. ENDOXAN [Concomitant]
     Route: 065
     Dates: start: 20070106, end: 20070107
  3. THYMOGLOBULIN [Concomitant]
     Route: 065
     Dates: start: 20070111, end: 20070112
  4. METHOTREXATE [Concomitant]
     Route: 065
  5. CYCLOSPORINE [Concomitant]
     Route: 065

REACTIONS (6)
  - ACUTE PULMONARY OEDEMA [None]
  - ACUTE RESPIRATORY DISTRESS SYNDROME [None]
  - GENERALISED OEDEMA [None]
  - PERICARDIAL EFFUSION [None]
  - PERICARDITIS [None]
  - PLEURAL EFFUSION [None]
